FAERS Safety Report 4620120-6 (Version None)
Quarter: 2005Q1

REPORT INFORMATION
  Report Type: 
  Country: None (occurrence: None)
  Receive Date: 20050328
  Receipt Date: 20040623
  Transmission Date: 20050727
  Serious: Yes (Hospitalization)
  Sender: FDA-Public Use
  Company Number: JP-BRISTOL-MYERS SQUIBB COMPANY-12624961

PATIENT
  Age: 72 Year
  Sex: Male

DRUGS (5)
  1. MAXIPIME [Suspect]
     Indication: INTERSTITIAL LUNG DISEASE
     Route: 041
     Dates: start: 20030520, end: 20030601
  2. ZITHROMAC [Suspect]
     Indication: INTERSTITIAL LUNG DISEASE
     Route: 048
     Dates: start: 20030520, end: 20030601
  3. AMLODIN [Concomitant]
     Route: 048
     Dates: start: 19980201, end: 20030601
  4. LIPITOR [Concomitant]
     Route: 048
     Dates: start: 19980201, end: 20030601
  5. HOKUNALIN [Concomitant]
     Route: 062
     Dates: start: 20030530, end: 20030601

REACTIONS (3)
  - ANAEMIA HAEMOLYTIC AUTOIMMUNE [None]
  - DISSEMINATED INTRAVASCULAR COAGULATION [None]
  - WHITE BLOOD CELL COUNT INCREASED [None]
